FAERS Safety Report 25215237 (Version 1)
Quarter: 2025Q2

REPORT INFORMATION
  Report Type: Report from Study
  Country: BR (occurrence: BR)
  Receive Date: 20250418
  Receipt Date: 20250418
  Transmission Date: 20250717
  Serious: Yes (Death, Other)
  Sender: ABBVIE
  Company Number: BR-ABBVIE-6234944

PATIENT
  Age: 25 Year
  Sex: Female
  Weight: 52 kg

DRUGS (2)
  1. HUMIRA [Suspect]
     Active Substance: ADALIMUMAB
     Indication: Juvenile idiopathic arthritis
     Route: 058
  2. METHOTREXATE [Suspect]
     Active Substance: METHOTREXATE
     Indication: Product used for unknown indication
     Route: 065

REACTIONS (8)
  - Encephalitis autoimmune [Fatal]
  - Headache [Unknown]
  - Head discomfort [Unknown]
  - Menstrual headache [Recovered/Resolved]
  - Nausea [Unknown]
  - Noninfective encephalitis [Unknown]
  - Alopecia [Unknown]
  - Seizure [Unknown]

NARRATIVE: CASE EVENT DATE: 20240101
